FAERS Safety Report 16185938 (Version 3)
Quarter: 2019Q2

REPORT INFORMATION
  Report Type: Spontaneous
  Country: NL (occurrence: NL)
  Receive Date: 20190411
  Receipt Date: 20190615
  Transmission Date: 20190711
  Serious: Yes (Other)
  Sender: FDA-Public Use
  Company Number: NL-009507513-1904NLD001957

PATIENT
  Sex: Female
  Weight: 95 kg

DRUGS (17)
  1. HYDROXOCOBALAMIN [Concomitant]
     Active Substance: HYDROXOCOBALAMIN
     Dosage: UNK, Q2M, CONCENTRATION 500 MICROGRAMS PER ML CF
  2. OCULOTECT (POVIDONE) [Concomitant]
     Dosage: CONCENTRATION 50 MG PER ML
  3. OXYNORM [Concomitant]
     Active Substance: OXYCODONE HYDROCHLORIDE
     Dosage: TRIED 2 TO 3 CAPSULES PER DAY
  4. PARACETAMOL [Concomitant]
     Active Substance: ACETAMINOPHEN
     Dosage: 4 TIMES 2 PARACETAMOL AS NEEDED
  5. METOPROLOL SUCCINATE. [Concomitant]
     Active Substance: METOPROLOL SUCCINATE
     Indication: HYPERTENSION
     Dosage: UNK, QD
  6. ATORVASTATIN [Suspect]
     Active Substance: ATORVASTATIN
  7. NORMACOL [Concomitant]
     Active Substance: HERBALS\KARAYA GUM
     Dosage: UNK UNK, PRN
  8. PARACETAMOL [Concomitant]
     Active Substance: ACETAMINOPHEN
     Dosage: UNK, PRN
  9. PANTOPRAZOLE [Concomitant]
     Active Substance: PANTOPRAZOLE
     Dosage: UNK, BID
  10. CHOLECALCIFEROL [Concomitant]
     Active Substance: CHOLECALCIFEROL
     Dosage: UNK
  11. HYDROXOCOBALAMIN [Concomitant]
     Active Substance: HYDROXOCOBALAMIN
     Dosage: UNK, QM, CONCENTRATION 500 MICROGRAMS PER ML CF
  12. HYDROCHLOROTHIAZIDE. [Concomitant]
     Active Substance: HYDROCHLOROTHIAZIDE
     Dosage: UNK, QD
  13. METOPROLOL. [Concomitant]
     Active Substance: METOPROLOL
     Dosage: UNK, QD
  14. COZAAR [Suspect]
     Active Substance: LOSARTAN POTASSIUM
     Indication: BLOOD PRESSURE ABNORMAL
     Dosage: 50 MILLIGRAM
     Route: 048
     Dates: start: 1994
  15. MEBEVERINE [Concomitant]
     Active Substance: MEBEVERINE
     Dosage: UNK, BID, RETARD CAPSULE
  16. LIPOSIC [Concomitant]
     Active Substance: CARBOMER
     Dosage: CONCENTRATION 2 MILLIGRAM/GRAM
  17. ACETYSALICYLIC ACID [Concomitant]
     Dosage: UNK UNK, QD, DISSOLVING TABLET

REACTIONS (12)
  - Peripheral swelling [Unknown]
  - Myalgia [Unknown]
  - Pleurisy [Unknown]
  - Muscle spasms [Unknown]
  - Fatigue [Unknown]
  - Basal cell carcinoma [Unknown]
  - Gout [Unknown]
  - Surgery [Unknown]
  - Toe amputation [Unknown]
  - Skin cancer [Recovered/Resolved with Sequelae]
  - Osteomyelitis [Unknown]
  - Inflammation [Unknown]

NARRATIVE: CASE EVENT DATE: 2015
